FAERS Safety Report 10037371 (Version 1)
Quarter: 2014Q1

REPORT INFORMATION
  Report Type: Spontaneous
  Country: US (occurrence: None)
  Receive Date: 20140325
  Receipt Date: 20140325
  Transmission Date: 20141002
  Serious: Yes (Other)
  Sender: FDA-Public Use
  Company Number: None

PATIENT
  Sex: Male
  Weight: 86.18 kg

DRUGS (2)
  1. PROPOFOL [Suspect]
  2. LIDOCAINE [Suspect]

REACTIONS (5)
  - Pain [None]
  - Pruritus generalised [None]
  - Hypoaesthesia [None]
  - Skin disorder [None]
  - Nightmare [None]
